FAERS Safety Report 5867245-5 (Version None)
Quarter: 2008Q3

REPORT INFORMATION
  Report Type: 
  Country: None (occurrence: None)
  Receive Date: 20080902
  Receipt Date: 20080828
  Transmission Date: 20090109
  Serious: Yes (Disabling)
  Sender: FDA-Public Use
  Company Number: US-MERCK-0808USA04092

PATIENT
  Age: 54 Year
  Sex: Female

DRUGS (8)
  1. JANUVIA [Suspect]
     Indication: TYPE 2 DIABETES MELLITUS
     Route: 048
     Dates: start: 20071016, end: 20080401
  2. SINGULAIR [Concomitant]
     Route: 065
  3. SYNTHROID [Concomitant]
     Route: 065
  4. CRESTOR [Concomitant]
     Route: 065
  5. GLUCOTROL [Concomitant]
     Route: 065
  6. VITAMIN D (UNSPECIFIED) [Concomitant]
     Route: 065
  7. VITAMIN B (UNSPECIFIED) [Concomitant]
     Route: 065
  8. METFORMIN [Concomitant]
     Route: 048
     Dates: start: 20080101

REACTIONS (1)
  - RENAL FAILURE [None]
